FAERS Safety Report 8127320-1 (Version None)
Quarter: 2012Q1

REPORT INFORMATION
  Report Type: 
  Country: None (occurrence: None)
  Receive Date: 20120210
  Receipt Date: 20120201
  Transmission Date: 20120608
  Serious: Yes (Death, Life-Threatening)
  Sender: FDA-Public Use
  Company Number: JP-BAXTER-2012BH003338

PATIENT
  Sex: Male
  Weight: 40 kg

DRUGS (6)
  1. FEIBA [Suspect]
     Indication: HAEMOSTASIS
     Route: 042
     Dates: start: 20120120, end: 20120120
  2. FEIBA [Suspect]
     Route: 042
     Dates: start: 20120121, end: 20120121
  3. NEORAL [Concomitant]
     Indication: IMMUNOSUPPRESSION
     Route: 048
  4. FEIBA [Suspect]
     Route: 042
     Dates: start: 20120121, end: 20120121
  5. FEIBA [Suspect]
     Indication: ACQUIRED HAEMOPHILIA
     Route: 042
     Dates: start: 20120120, end: 20120120
  6. PLETAL [Concomitant]
     Indication: PRODUCT USED FOR UNKNOWN INDICATION
     Route: 048

REACTIONS (2)
  - GASTRIC CANCER [None]
  - DISSEMINATED INTRAVASCULAR COAGULATION [None]
